FAERS Safety Report 14994744 (Version 1)
Quarter: 2018Q2

REPORT INFORMATION
  Report Type: Spontaneous
  Country: BR (occurrence: BR)
  Receive Date: 20180611
  Receipt Date: 20180611
  Transmission Date: 20180711
  Serious: Yes (Other)
  Sender: FDA-Public Use
  Company Number: PHHY2018BR008188

PATIENT
  Sex: Female
  Weight: 63 kg

DRUGS (5)
  1. LOSARTAN. [Concomitant]
     Active Substance: LOSARTAN
     Indication: HYPERTENSION
     Dosage: 2 DF, QD
     Route: 048
  2. ATENOLOL. [Concomitant]
     Active Substance: ATENOLOL
     Indication: PRODUCT USED FOR UNKNOWN INDICATION
     Dosage: 1 DF, QD
     Route: 048
  3. HYDROCHOROTHIAZIDE [Concomitant]
     Active Substance: HYDROCHLOROTHIAZIDE
     Indication: HYPERTENSION
     Dosage: 1 DF, QD
     Route: 048
  4. EUTHYROX [Concomitant]
     Active Substance: LEVOTHYROXINE SODIUM
     Indication: THYROID DISORDER
     Dosage: 1 DF, QD
     Route: 048
  5. LACRIMA PLUS (ALC) [Suspect]
     Active Substance: DEXTRAN 70\HYPROMELLOSES
     Indication: DRY EYE
     Dosage: 1 GTT, QD
     Route: 047

REACTIONS (8)
  - Osteoarthritis [Unknown]
  - Dry eye [Unknown]
  - Product storage error [Unknown]
  - Cataract [Unknown]
  - Hypoacusis [Unknown]
  - Foreign body sensation in eyes [Unknown]
  - Product container seal issue [Unknown]
  - Product quality issue [Unknown]
